FAERS Safety Report 10219784 (Version 1)
Quarter: 2014Q2

REPORT INFORMATION
  Report Type: Spontaneous
  Country: US (occurrence: US)
  Receive Date: 20140605
  Receipt Date: 20140605
  Transmission Date: 20141212
  Serious: Yes (Other)
  Sender: FDA-Public Use
  Company Number: US-PFIZER INC-2014150456

PATIENT
  Age: 72 Year
  Sex: Female
  Weight: 39 kg

DRUGS (2)
  1. ATORVASTATIN CALCIUM [Suspect]
     Indication: CARDIAC DISORDER
     Dosage: 40 MG, 1X/DAY
     Dates: start: 20120304, end: 201203
  2. PLAVIX [Concomitant]
     Dosage: UNK

REACTIONS (9)
  - Cerebrovascular accident [Recovered/Resolved]
  - Deformity [Recovered/Resolved]
  - Limb discomfort [Recovered/Resolved]
  - Speech disorder [Recovered/Resolved]
  - Palpitations [Recovered/Resolved]
  - Pain [Recovered/Resolved]
  - Chest discomfort [Recovered/Resolved]
  - Dizziness [Recovered/Resolved]
  - Off label use [Unknown]
